FAERS Safety Report 9303643 (Version 1)
Quarter: 2013Q2

REPORT INFORMATION
  Report Type: Spontaneous
  Country: IT (occurrence: IT)
  Receive Date: 20130522
  Receipt Date: 20130522
  Transmission Date: 20140414
  Serious: Yes (Other)
  Sender: FDA-Public Use
  Company Number: IT-TEVA-405938ISR

PATIENT
  Age: 81 Year
  Sex: Male

DRUGS (2)
  1. PAROXETINE [Suspect]
     Indication: DEMENTIA
     Dosage: 20 MILLIGRAM DAILY;
     Route: 048
     Dates: start: 20130101, end: 20130426
  2. SEROQUEL [Suspect]
     Indication: DEMENTIA
     Dosage: 1 DOSAGE FORMS DAILY;
     Route: 048
     Dates: start: 20130101, end: 20130426

REACTIONS (1)
  - Coma [Recovered/Resolved]
